FAERS Safety Report 6073945-7 (Version None)
Quarter: 2009Q1

REPORT INFORMATION
  Report Type: 
  Country: None (occurrence: None)
  Receive Date: 20090211
  Receipt Date: 20090204
  Transmission Date: 20090719
  Serious: Yes (Hospitalization)
  Sender: FDA-Public Use
  Company Number: PHHY2009SE03957

PATIENT
  Sex: Female

DRUGS (17)
  1. ACLASTA [Suspect]
     Indication: OSTEOPOROSIS
     Dosage: 5 MG, UNK
     Dates: start: 20081022
  2. NITROLINGUAL [Concomitant]
     Dosage: UNK
  3. ATROVENT [Concomitant]
     Dosage: UNK
  4. PLAVIX [Concomitant]
     Dosage: UNK
  5. PULMICORT-100 [Concomitant]
     Dosage: UNK
  6. ACETAMINOPHEN [Concomitant]
     Dosage: UNK
  7. LAXOBERAL ^BOEHRINGER INGELHEIM^ [Concomitant]
     Dosage: UNK
  8. DIGOXIN [Concomitant]
     Dosage: UNK
  9. PREDNISOLONE [Concomitant]
     Dosage: UNK
  10. MYCOSTATIN [Concomitant]
     Dosage: UNK
  11. FURIX [Concomitant]
     Dosage: UNK
  12. CARDIZEM [Concomitant]
     Dosage: UNK
  13. NORMORIX [Concomitant]
     Dosage: UNK
  14. INNOHEP                                 /GFR/ [Concomitant]
     Dosage: UNK
  15. IMOVANE [Concomitant]
     Dosage: UNK
  16. KALCIPOS [Concomitant]
     Dosage: UNK
  17. TRIOBE [Concomitant]
     Dosage: UNK

REACTIONS (3)
  - DEHYDRATION [None]
  - GENERAL PHYSICAL HEALTH DETERIORATION [None]
  - VOMITING [None]
